FAERS Safety Report 17162695 (Version 1)
Quarter: 2019Q4

REPORT INFORMATION
  Report Type: Spontaneous
  Country: US (occurrence: US)
  Receive Date: 20191216
  Receipt Date: 20191216
  Transmission Date: 20200122
  Serious: Yes (Other)
  Sender: FDA-Public Use
  Company Number: None

PATIENT
  Sex: Male

DRUGS (1)
  1. METOPROLOL 100 MG [Suspect]
     Active Substance: METOPROLOL

REACTIONS (2)
  - Dysgeusia [None]
  - Dizziness [None]
